FAERS Safety Report 24206708 (Version 1)
Quarter: 2024Q3

REPORT INFORMATION
  Report Type: Spontaneous
  Country: DE (occurrence: DE)
  Receive Date: 20240813
  Receipt Date: 20240813
  Transmission Date: 20241017
  Serious: Yes (Other)
  Sender: JAZZ
  Company Number: DE-JAZZ PHARMACEUTICALS-2024-DE-003754

PATIENT
  Age: 68 Year

DRUGS (1)
  1. VYXEOS [Suspect]
     Active Substance: CYTARABINE\DAUNORUBICIN
     Indication: Acute myeloid leukaemia
     Dosage: UNK
     Dates: start: 20230619

REACTIONS (3)
  - Febrile neutropenia [Unknown]
  - Thrombophlebitis [Unknown]
  - Off label use [Unknown]
